FAERS Safety Report 5589604-0 (Version None)
Quarter: 2008Q1

REPORT INFORMATION
  Report Type: 
  Country: None (occurrence: None)
  Receive Date: 20080114
  Receipt Date: 20080109
  Transmission Date: 20080703
  Serious: Yes (Other)
  Sender: FDA-Public Use
  Company Number: A0683607A

PATIENT
  Sex: Female

DRUGS (2)
  1. PAXIL [Suspect]
     Indication: DRUG USE FOR UNKNOWN INDICATION
     Route: 048
  2. UNKNOWN [Concomitant]

REACTIONS (7)
  - ADVERSE DRUG REACTION [None]
  - CHEST PAIN [None]
  - DISABILITY [None]
  - DRUG DEPENDENCE [None]
  - MALAISE [None]
  - PERFORMANCE STATUS DECREASED [None]
  - WITHDRAWAL SYNDROME [None]
